FAERS Safety Report 19491060 (Version 1)
Quarter: 2021Q3

REPORT INFORMATION
  Report Type: Spontaneous
  Country: IT (occurrence: IT)
  Receive Date: 20210705
  Receipt Date: 20210705
  Transmission Date: 20211014
  Serious: Yes (Life-Threatening, Hospitalization, Other)
  Sender: FDA-Public Use
  Company Number: IT-PURACAP-IT-2021EPCLIT00688

PATIENT
  Age: 55 Year
  Sex: Female

DRUGS (11)
  1. ACETAMINOPHEN. [Suspect]
     Active Substance: ACETAMINOPHEN
     Indication: PAIN
     Route: 065
  2. N?ACETYLCYSTEINE [Interacting]
     Active Substance: ACETYLCYSTEINE
     Route: 042
  3. ACETAMINOPHEN AND CODEINE [Suspect]
     Active Substance: ACETAMINOPHEN\CODEINE PHOSPHATE
     Indication: PAIN
     Route: 065
  4. TRAMADOL. [Suspect]
     Active Substance: TRAMADOL
     Indication: PAIN
     Route: 065
  5. BROMAZEPAM [Suspect]
     Active Substance: BROMAZEPAM
     Indication: PAIN
     Route: 065
  6. NORADRENALINE (NORPINEPHRINE) [Interacting]
     Active Substance: NOREPINEPHRINE
     Dosage: 0.2 MG/KG/MIN
     Route: 065
  7. CHARCOAL [Interacting]
     Active Substance: ACTIVATED CHARCOAL
     Route: 048
  8. PREGABALIN. [Suspect]
     Active Substance: PREGABALIN
     Indication: PAIN
     Route: 065
  9. ADRENALINE [EPINEPHRINE] [Interacting]
     Active Substance: EPINEPHRINE
     Dosage: 0.2 MG/ KG/MIN
     Route: 065
  10. NALOXONE;OXYCODONE [Suspect]
     Active Substance: NALOXONE HYDROCHLORIDE\OXYCODONE HYDROCHLORIDE
     Indication: PAIN
     Route: 065
  11. CARBAMAZEPINE. [Suspect]
     Active Substance: CARBAMAZEPINE
     Indication: PAIN
     Route: 065

REACTIONS (12)
  - Hypotension [Recovered/Resolved]
  - Lactic acidosis [Unknown]
  - Bradypnoea [Recovered/Resolved]
  - Hepatitis acute [Recovered/Resolved]
  - Bradycardia [Recovered/Resolved]
  - Hypothermia [Recovered/Resolved]
  - Drug interaction [Unknown]
  - Hypokalaemia [Recovered/Resolved]
  - Mydriasis [Unknown]
  - Coma [Recovered/Resolved]
  - Atrial fibrillation [Recovered/Resolved]
  - Toxicity to various agents [Unknown]
